FAERS Safety Report 8811109 (Version 2)
Quarter: 2012Q4

REPORT INFORMATION
  Report Type: Report from Study
  Country: US (occurrence: US)
  Receive Date: 20120927
  Receipt Date: 20121022
  Transmission Date: 20130627
  Serious: Yes (Hospitalization)
  Sender: FDA-Public Use
  Company Number: US-ABBOTT-12P-163-0984219-00

PATIENT
  Sex: Female

DRUGS (1)
  1. HUMIRA [Suspect]
     Indication: RHEUMATOID ARTHRITIS
     Dates: start: 201209, end: 201209

REACTIONS (5)
  - Pyrexia [Unknown]
  - Hypersensitivity [Unknown]
  - Swelling face [Unknown]
  - Headache [Unknown]
  - Blood pressure increased [Unknown]
